FAERS Safety Report 11538589 (Version 4)
Quarter: 2017Q1

REPORT INFORMATION
  Report Type: Spontaneous
  Country: AU (occurrence: AU)
  Receive Date: 20150922
  Receipt Date: 20170314
  Transmission Date: 20170428
  Serious: Yes (Other)
  Sender: FDA-Public Use
  Company Number: AU-AMGEN-AUSSP2015097357

PATIENT
  Age: 64 Year
  Sex: Male

DRUGS (1)
  1. XGEVA [Suspect]
     Active Substance: DENOSUMAB
     Indication: CHONDROBLASTOMA
     Dosage: 120 MG, QMO
     Route: 058
     Dates: start: 201208

REACTIONS (2)
  - Disease recurrence [Recovered/Resolved]
  - Disease progression [Unknown]
